FAERS Safety Report 9955357 (Version 1)
Quarter: 2014Q1

REPORT INFORMATION
  Report Type: Spontaneous
  Country: US (occurrence: US)
  Receive Date: 20140304
  Receipt Date: 20140304
  Transmission Date: 20141002
  Serious: Yes (Other)
  Sender: FDA-Public Use
  Company Number: PHHY2014US023803

PATIENT
  Age: 64 Year
  Sex: Male

DRUGS (5)
  1. BORTEZOMIB [Suspect]
     Indication: AMYLOIDOSIS
     Dosage: 1.3 MG/M2
  2. BORTEZOMIB [Suspect]
     Dosage: 1 MG/M2, UNK
  3. DEXAMETHASONE [Suspect]
     Indication: AMYLOIDOSIS
     Dosage: 10 MG, UNK
  4. DEXAMETHASONE [Suspect]
     Dosage: 4 MG, UNK
  5. LENALIDOMIDE [Suspect]
     Indication: AMYLOIDOSIS
     Dosage: 15 MG, UNK

REACTIONS (2)
  - Fluid overload [Unknown]
  - Diarrhoea [Unknown]
